FAERS Safety Report 7669920-9 (Version None)
Quarter: 2011Q3

REPORT INFORMATION
  Report Type: 
  Country: None (occurrence: None)
  Receive Date: 20110808
  Receipt Date: 20110802
  Transmission Date: 20111222
  Serious: Yes (Other)
  Sender: FDA-Public Use
  Company Number: PHHY2011FR41208

PATIENT
  Sex: Male

DRUGS (2)
  1. AMLODIPINE BESYLATE [Concomitant]
     Indication: HYPERTENSION
     Dosage: 5 MG, QD
  2. LAMISIL [Suspect]
     Indication: ONYCHOMYCOSIS
     Dosage: 1 DF, QD
     Route: 048
     Dates: start: 20040528, end: 20040618

REACTIONS (5)
  - HYPERTENSION [None]
  - RASH [None]
  - HEPATITIS [None]
  - ERYSIPELAS [None]
  - PYREXIA [None]
